FAERS Safety Report 10705297 (Version 7)
Quarter: 2015Q2

REPORT INFORMATION
  Report Type: Spontaneous
  Country: US (occurrence: US)
  Receive Date: 20150112
  Receipt Date: 20150511
  Transmission Date: 20150821
  Serious: Yes (Hospitalization, Other)
  Sender: FDA-Public Use
  Company Number: US-UNITED THERAPEUTICS-UNT-2015-000075

PATIENT
  Age: 69 Year
  Sex: Female
  Weight: 138.32 kg

DRUGS (8)
  1. REMODULIN [Suspect]
     Active Substance: TREPROSTINIL
     Dosage: UNK
  2. LETAIRIS [Suspect]
     Active Substance: AMBRISENTAN
     Indication: PRODUCT USED FOR UNKNOWN INDICATION
     Dosage: 5 MG, QD
     Dates: start: 20150226
  3. REMODULIN [Suspect]
     Active Substance: TREPROSTINIL
     Indication: PULMONARY ARTERIAL HYPERTENSION
     Dosage: 0.137 ?G/KG, CONTINUING
     Route: 041
     Dates: start: 20061110
  4. REMODULIN [Suspect]
     Active Substance: TREPROSTINIL
     Dosage: 0.137 ?G/KG, CONTINUING
     Route: 041
     Dates: start: 20070920
  5. TRACLEER [Concomitant]
     Active Substance: BOSENTAN\BOSENTAN MONOHYDRATE
     Indication: PRODUCT USED FOR UNKNOWN INDICATION
  6. ADCIRCA [Concomitant]
     Active Substance: TADALAFIL
     Indication: PRODUCT USED FOR UNKNOWN INDICATION
  7. REMODULIN [Suspect]
     Active Substance: TREPROSTINIL
     Dosage: 0.100 ?G/KG, CONTINUING
     Route: 041
     Dates: start: 20150227
  8. REMODULIN [Suspect]
     Active Substance: TREPROSTINIL
     Dosage: 0.090 ?G/KG, CONTINUING
     Route: 041
     Dates: start: 20150306

REACTIONS (18)
  - Acute respiratory failure [Unknown]
  - Pneumonia influenzal [Unknown]
  - Pulmonary arterial pressure [Unknown]
  - Fall [Recovered/Resolved]
  - Renal tubular necrosis [Unknown]
  - Pain in extremity [Recovered/Resolved]
  - Mitral valve sclerosis [Unknown]
  - Pneumonia [Unknown]
  - Thrombocytopenia [Unknown]
  - Influenza [Unknown]
  - Gout [Unknown]
  - Acute kidney injury [Unknown]
  - Hypotension [Unknown]
  - Diarrhoea [Unknown]
  - Muscular weakness [Unknown]
  - Aortic valve sclerosis [Unknown]
  - Cardiac failure congestive [Unknown]
  - Osteoarthritis [Unknown]

NARRATIVE: CASE EVENT DATE: 20150120
